FAERS Safety Report 9423067 (Version 3)
Quarter: 2013Q4

REPORT INFORMATION
  Report Type: Spontaneous
  Country: FR (occurrence: FR)
  Receive Date: 20130726
  Receipt Date: 20131030
  Transmission Date: 20140711
  Serious: Yes (Hospitalization)
  Sender: FDA-Public Use
  Company Number: FR-GLAXOSMITHKLINE-B0909605A

PATIENT
  Age: 77 Year
  Sex: Female

DRUGS (6)
  1. ZOPHREN [Suspect]
     Indication: PREMEDICATION
     Dosage: 8MG CYCLIC
     Route: 048
     Dates: start: 20120925
  2. ALKERAN [Suspect]
     Indication: PLASMA CELL MYELOMA
     Dosage: 14.58MG CYCLIC
     Route: 065
     Dates: start: 20120925
  3. BACTRIM [Suspect]
     Indication: URINARY TRACT INFECTION
     Dosage: 1TAB TWICE PER DAY
     Route: 048
     Dates: start: 20121204, end: 20121210
  4. VELCADE [Suspect]
     Indication: PLASMA CELL MYELOMA
     Dosage: 2.1MG CYCLIC
     Route: 058
     Dates: start: 20120925
  5. PREDNISONE [Concomitant]
     Indication: PLASMA CELL MYELOMA
     Dates: start: 20120925
  6. SIMVASTATINE [Concomitant]

REACTIONS (3)
  - Thrombocytopenia [Recovered/Resolved]
  - Rash [Recovered/Resolved]
  - Conjunctivitis allergic [Recovered/Resolved]
